FAERS Safety Report 20923645 (Version 1)
Quarter: 2022Q2

REPORT INFORMATION
  Report Type: Spontaneous
  Country: TW (occurrence: TW)
  Receive Date: 20220607
  Receipt Date: 20220607
  Transmission Date: 20220721
  Serious: Yes (Death, Other)
  Sender: FDA-Public Use
  Company Number: TW-MYLANLABS-2022M1043192

PATIENT
  Age: 58 Year
  Sex: Male

DRUGS (4)
  1. DOXORUBICIN [Suspect]
     Active Substance: DOXORUBICIN
     Indication: Anaplastic thyroid cancer
     Dosage: 60 MILLIGRAM/SQ. METER (RECEIVED FOUR CYCLES)
     Route: 042
  2. PEMBROLIZUMAB [Suspect]
     Active Substance: PEMBROLIZUMAB
     Indication: Anaplastic thyroid cancer
     Dosage: 200 MILLIGRAM (RECEIVED FOUR CYCLES)
  3. LENVATINIB [Suspect]
     Active Substance: LENVATINIB
     Indication: Anaplastic thyroid cancer
     Dosage: 20 MILLIGRAM, QD (RECEIVED FOUR CYCLES; ON EACH ALTERNATE DAY)
     Route: 048
  4. LENVATINIB [Suspect]
     Active Substance: LENVATINIB
     Dosage: 10 MILLIGRAM, QD (RECEIVED FOUR CYCLES; ON EACH ALTERNATE DAY)
     Route: 048

REACTIONS (6)
  - Pneumonia [Fatal]
  - Septic shock [Fatal]
  - Febrile neutropenia [Unknown]
  - Pneumonia aspiration [Unknown]
  - Fistula [Unknown]
  - Skin infection [Unknown]
